FAERS Safety Report 20066134 (Version 2)
Quarter: 2021Q4

REPORT INFORMATION
  Report Type: Report from Study
  Country: DE (occurrence: DE)
  Receive Date: 20211114
  Receipt Date: 20211118
  Transmission Date: 20220303
  Serious: Yes (Hospitalization)
  Sender: FDA-Public Use
  Company Number: DE-NOVARTISPH-NVSC2021DE193785

PATIENT
  Age: 37 Year
  Sex: Male
  Weight: 69 kg

DRUGS (25)
  1. FLUOROURACIL [Suspect]
     Active Substance: FLUOROURACIL
     Indication: Colorectal cancer
     Dosage: 704 MG, Q2W
     Route: 040
     Dates: start: 20210819
  2. GEVOKIZUMAB [Suspect]
     Active Substance: GEVOKIZUMAB
     Indication: Colorectal cancer
     Dosage: 120 MG, Q4W
     Route: 042
     Dates: start: 20210819
  3. BEVACIZUMAB [Suspect]
     Active Substance: BEVACIZUMAB
     Indication: Colorectal cancer
     Dosage: 345 MG, Q2W
     Route: 042
     Dates: start: 20210819
  4. LEUCOVORIN [Suspect]
     Active Substance: LEUCOVORIN
     Indication: Colorectal cancer
     Dosage: 704 MG, Q2W
     Route: 041
     Dates: start: 20210819
  5. CEFTRIAXONE [Concomitant]
     Active Substance: CEFTRIAXONE
     Indication: Evidence based treatment
     Dosage: UNK
     Route: 065
     Dates: start: 20210821, end: 20210826
  6. SODIUM CHLORIDE [Concomitant]
     Active Substance: SODIUM CHLORIDE
     Indication: Prophylaxis
     Dosage: UNK
     Route: 065
     Dates: start: 20210821, end: 20210830
  7. PANTOPRAZOLE SODIUM [Concomitant]
     Active Substance: PANTOPRAZOLE SODIUM
     Indication: Prophylaxis
     Dosage: UNK
     Route: 065
     Dates: start: 20210727
  8. PANTOPRAZOLE SODIUM [Concomitant]
     Active Substance: PANTOPRAZOLE SODIUM
     Indication: Chronic gastritis
  9. POLYETHYLENE GLYCOLS [Concomitant]
     Active Substance: POLYETHYLENE GLYCOLS
     Indication: Constipation
     Dosage: UNK
     Route: 065
     Dates: start: 20210727
  10. METAMIZOL [Concomitant]
     Active Substance: METAMIZOLE SODIUM
     Indication: Abdominal pain
     Dosage: UNK
     Route: 065
     Dates: start: 20210727
  11. LEVOFLOXACIN [Concomitant]
     Active Substance: LEVOFLOXACIN
     Indication: Prophylaxis
     Dosage: UNK
     Route: 065
     Dates: start: 20210809, end: 20210816
  12. LEVOFLOXACIN [Concomitant]
     Active Substance: LEVOFLOXACIN
     Indication: Subdiaphragmatic abscess
  13. PIRITRAMIDE [Concomitant]
     Active Substance: PIRITRAMIDE
     Indication: Abdominal pain
     Dosage: UNK
     Route: 065
     Dates: start: 20210810, end: 20210810
  14. LEVETIRACETAM [Concomitant]
     Active Substance: LEVETIRACETAM
     Indication: Seizure
     Dosage: UNK
     Route: 065
     Dates: start: 20210821, end: 20210831
  15. LEVETIRACETAM [Concomitant]
     Active Substance: LEVETIRACETAM
     Indication: Prophylaxis
     Dosage: UNK
     Route: 065
     Dates: start: 20210901
  16. PREDNISOLONE [Concomitant]
     Active Substance: PREDNISOLONE
     Indication: Seizure
     Dosage: UNK
     Route: 065
     Dates: start: 20210821, end: 20210821
  17. DIAZEPAM [Concomitant]
     Active Substance: DIAZEPAM
     Indication: Seizure
     Dosage: UNK
     Route: 065
     Dates: start: 20210822, end: 20210822
  18. ACETAMINOPHEN [Concomitant]
     Active Substance: ACETAMINOPHEN
     Indication: Seizure
     Dosage: UNK
     Route: 065
     Dates: start: 20210824, end: 20210824
  19. POTASSIUM CHLORIDE [Concomitant]
     Active Substance: POTASSIUM CHLORIDE
     Indication: Hypokalaemia
     Dosage: UNK
     Route: 065
     Dates: start: 20210822, end: 20210822
  20. MIRTAZAPINE [Concomitant]
     Active Substance: MIRTAZAPINE
     Indication: Decreased appetite
     Dosage: UNK
     Route: 065
     Dates: start: 20210824
  21. MIRTAZAPINE [Concomitant]
     Active Substance: MIRTAZAPINE
     Indication: Nausea
  22. INNOHEP [Concomitant]
     Active Substance: TINZAPARIN SODIUM
     Indication: Prophylaxis
     Dosage: UNK
     Route: 065
     Dates: start: 20210827, end: 20210830
  23. GRANISETRON HYDROCHLORIDE [Concomitant]
     Active Substance: GRANISETRON HYDROCHLORIDE
     Indication: Premedication
     Dosage: UNK
     Route: 065
     Dates: start: 20210819, end: 20210819
  24. EMEND [Concomitant]
     Active Substance: APREPITANT
     Indication: Premedication
     Dosage: UNK
     Route: 065
     Dates: start: 20210819, end: 20210819
  25. EMEND [Concomitant]
     Active Substance: APREPITANT
     Dosage: UNK
     Route: 065
     Dates: start: 20210902, end: 20210902

REACTIONS (2)
  - Central nervous system lesion [Recovered/Resolved]
  - Central nervous system lesion [Recovered/Resolved]

NARRATIVE: CASE EVENT DATE: 20210821
